FAERS Safety Report 10997614 (Version 2)
Quarter: 2015Q2

REPORT INFORMATION
  Report Type: Spontaneous
  Country: GB (occurrence: GB)
  Receive Date: 20150408
  Receipt Date: 20150413
  Transmission Date: 20150821
  Serious: Yes (Other)
  Sender: FDA-Public Use
  Company Number: GB-PFIZER INC-2015120979

PATIENT
  Age: 34 Year
  Sex: Female

DRUGS (6)
  1. EPANUTIN [Suspect]
     Active Substance: PHENYTOIN SODIUM
     Indication: EPILEPSY
     Dosage: 1 CAPSULE, 3X/DAY
     Dates: start: 19390125, end: 19391129
  2. CHLORAL HYDRATE [Concomitant]
     Active Substance: CHLORAL HYDRATE
     Indication: EPILEPSY
     Dosage: GR. 15 FOUR-HOURLY
     Dates: start: 19391201
  3. EVIPAN [Concomitant]
     Indication: EPILEPSY
     Dosage: 10 C.CM AT 6 A.M . AND 10 P.M
     Route: 042
     Dates: start: 19391202
  4. EPANUTIN [Suspect]
     Active Substance: PHENYTOIN SODIUM
     Dosage: 1 CAPSULE, 4X/DAY
     Dates: start: 19391130, end: 19391201
  5. LUMINAL [Concomitant]
     Active Substance: PHENOBARBITAL SODIUM
     Indication: EPILEPSY
     Dosage: 1 GR. 2X DAILY
  6. LUMINAL [Concomitant]
     Active Substance: PHENOBARBITAL SODIUM
     Dosage: GR. 1.5 THRICE DAILY
     Dates: start: 19391206

REACTIONS (1)
  - Hemiplegia [Recovered/Resolved with Sequelae]
